FAERS Safety Report 25783498 (Version 1)
Quarter: 2025Q3

REPORT INFORMATION
  Report Type: Spontaneous
  Country: EU (occurrence: EU)
  Receive Date: 20250910
  Receipt Date: 20250910
  Transmission Date: 20251021
  Serious: Yes (Death)
  Sender: VELOXIS PHARMACEUTICALS
  Company Number: EU-CHIESI-2025CHF06255

PATIENT
  Sex: Male

DRUGS (3)
  1. ENVARSUS XR [Suspect]
     Active Substance: TACROLIMUS
     Indication: Prophylaxis against transplant rejection
  2. ENVARSUS XR [Suspect]
     Active Substance: TACROLIMUS
     Indication: Prophylaxis against transplant rejection
  3. ENVARSUS XR [Suspect]
     Active Substance: TACROLIMUS
     Indication: Transplant rejection

REACTIONS (2)
  - Death [Fatal]
  - Off label use [Recovered/Resolved]
